FAERS Safety Report 8988866 (Version 1)
Quarter: 2013Q1

REPORT INFORMATION
  Report Type: Spontaneous
  Country: US (occurrence: None)
  Receive Date: 20121224
  Receipt Date: 20121224
  Transmission Date: 20140127
  Serious: Yes (Hospitalization)
  Sender: FDA-Public Use
  Company Number: None

PATIENT
  Age: 73 Year
  Sex: Male
  Weight: 82.3 kg

DRUGS (9)
  1. DECITABINE [Suspect]
     Route: 058
  2. CIPRO [Concomitant]
  3. ACYCLOVIR [Concomitant]
  4. DIFLUCAN [Concomitant]
  5. HCTZ [Concomitant]
  6. BMX SOLUTION [Concomitant]
  7. DOCUSATE SODIUM [Concomitant]
  8. COMPAZINE [Concomitant]
  9. CIALIS [Concomitant]

REACTIONS (1)
  - Herpes virus infection [None]
